FAERS Safety Report 11810448 (Version 1)
Quarter: 2015Q4

REPORT INFORMATION
  Report Type: Spontaneous
  Country: US (occurrence: None)
  Receive Date: 20151207
  Receipt Date: 20151207
  Transmission Date: 20160305
  Serious: No
  Sender: FDA-Public Use
  Company Number: None

PATIENT
  Sex: Female

DRUGS (1)
  1. ENBREL [Suspect]
     Active Substance: ETANERCEPT
     Indication: RHEUMATOID ARTHRITIS
     Dosage: Q7D
     Route: 058
     Dates: end: 20151202

REACTIONS (4)
  - Injection site swelling [None]
  - Injection site rash [None]
  - Injection site pruritus [None]
  - Injection site pain [None]
